FAERS Safety Report 9496766 (Version 1)
Quarter: 2013Q3

REPORT INFORMATION
  Report Type: Spontaneous
  Country: BR (occurrence: BR)
  Receive Date: 20130904
  Receipt Date: 20130904
  Transmission Date: 20140515
  Serious: Yes (Other)
  Sender: FDA-Public Use
  Company Number: BR-PFIZER INC-2013253369

PATIENT
  Age: 79 Year
  Sex: Female

DRUGS (2)
  1. CITALOR [Suspect]
     Indication: BLOOD CHOLESTEROL INCREASED
     Dosage: 10 MG, ONCE DAILY
     Route: 048
     Dates: start: 2010
  2. LIPITOR [Concomitant]
     Indication: BLOOD CHOLESTEROL

REACTIONS (2)
  - Cardiac disorder [Unknown]
  - Cardiac disorder [Unknown]
